FAERS Safety Report 9750334 (Version 1)
Quarter: 2013Q4

REPORT INFORMATION
  Report Type: Spontaneous
  Country: US (occurrence: US)
  Receive Date: 20131212
  Receipt Date: 20131212
  Transmission Date: 20140711
  Serious: No
  Sender: FDA-Public Use
  Company Number: US-ENDO PHARMACEUTICALS INC.-BUTA20130001

PATIENT
  Age: 51 Year
  Sex: Female
  Weight: 68.55 kg

DRUGS (2)
  1. BUTALBITAL/ACETAMINOPHEN/CAFFEINE TABLETS [Suspect]
     Indication: CHEST PAIN
     Dosage: 50/325/40MG
     Route: 048
     Dates: start: 20130122
  2. NEURONTIN [Concomitant]
     Indication: PAIN
     Dosage: UNK
     Route: 065

REACTIONS (1)
  - Drug effect decreased [Not Recovered/Not Resolved]
